FAERS Safety Report 8045786-2 (Version None)
Quarter: 2012Q1

REPORT INFORMATION
  Report Type: 
  Country: None (occurrence: None)
  Receive Date: 20120113
  Receipt Date: 20120111
  Transmission Date: 20120608
  Serious: No
  Sender: FDA-Public Use
  Company Number: US-CELGENEUS-163-21880-11091660

PATIENT
  Sex: Male

DRUGS (16)
  1. MEPRON [Concomitant]
     Route: 065
     Dates: start: 20110726
  2. CLONAZEPAM [Concomitant]
     Dosage: .5 MILLIGRAM
     Route: 065
     Dates: start: 20110726
  3. CRESTOR [Concomitant]
     Dosage: 10 MILLIGRAM
     Route: 065
     Dates: start: 20110726
  4. NEURONTIN [Concomitant]
     Dosage: 600 MILLIGRAM
     Route: 065
     Dates: start: 20110726
  5. MULTI [Concomitant]
     Route: 065
     Dates: start: 20110726
  6. REVLIMID [Suspect]
     Dosage: 5 MILLIGRAM
     Route: 048
     Dates: start: 20110401
  7. METFORMIN HCL [Concomitant]
     Dosage: 500 MILLIGRAM
     Route: 065
     Dates: start: 20110726
  8. POTASSIUM CHLORIDE [Concomitant]
     Dosage: 20 MILLIEQUIVALENTS
     Route: 065
     Dates: start: 20110726
  9. BYETTA [Concomitant]
     Dosage: 10 MICROGRAM
     Route: 065
     Dates: start: 20110726
  10. REVLIMID [Suspect]
     Dosage: 5 MILLIGRAM
     Route: 048
     Dates: start: 20110801
  11. LEXAPRO [Concomitant]
     Dosage: 10 MILLIGRAM
     Route: 065
     Dates: start: 20110726
  12. ATENOLOL [Concomitant]
     Dosage: 25 MILLIGRAM
     Route: 065
     Dates: start: 20110726
  13. REVLIMID [Suspect]
     Indication: MULTIPLE MYELOMA
     Dosage: 10 MILLIGRAM
     Route: 048
     Dates: start: 20101217
  14. VITAMIN D [Concomitant]
     Dosage: 50000 UNIT
     Route: 065
     Dates: start: 20110726
  15. REMERON [Concomitant]
     Dosage: 15 MILLIGRAM
     Route: 065
     Dates: start: 20110726
  16. VALTREX [Concomitant]
     Dosage: 500 MILLIGRAM
     Route: 065
     Dates: start: 20110726

REACTIONS (2)
  - BLOOD GLUCOSE DECREASED [None]
  - FATIGUE [None]
